FAERS Safety Report 11852052 (Version 1)
Quarter: 2015Q4

REPORT INFORMATION
  Report Type: Spontaneous
  Country: US (occurrence: US)
  Receive Date: 20151218
  Receipt Date: 20151218
  Transmission Date: 20160305
  Serious: No
  Sender: FDA-Public Use
  Company Number: US-GLAXOSMITHKLINE-US2015177179

PATIENT
  Sex: Female

DRUGS (1)
  1. ZANTAC [Suspect]
     Active Substance: RANITIDINE HYDROCHLORIDE
     Indication: INFLAMMATION
     Dosage: 150 MG, BID
     Route: 048

REACTIONS (3)
  - Malaise [Unknown]
  - Drug dose omission [Unknown]
  - Chest pain [Unknown]
